FAERS Safety Report 8926983 (Version 1)
Quarter: 2012Q4

REPORT INFORMATION
  Report Type: Report from Study
  Country: CA (occurrence: CA)
  Receive Date: 20121127
  Receipt Date: 20121127
  Transmission Date: 20130627
  Serious: Yes (Life-Threatening)
  Sender: FDA-Public Use
  Company Number: CA-JNJFOC-20121105713

PATIENT
  Age: 3 None
  Sex: Female

DRUGS (2)
  1. REMICADE [Suspect]
     Indication: COLITIS ULCERATIVE
     Route: 042
     Dates: start: 2009, end: 200910
  2. AZATHIOPRINE [Suspect]
     Indication: COLITIS ULCERATIVE

REACTIONS (1)
  - T-cell lymphoma [Unknown]
